FAERS Safety Report 9890968 (Version 2)
Quarter: 2014Q2

REPORT INFORMATION
  Report Type: Spontaneous
  Country: JP (occurrence: None)
  Receive Date: 20140210
  Receipt Date: 20140424
  Transmission Date: 20141212
  Serious: Yes (Hospitalization)
  Sender: FDA-Public Use
  Company Number: SYM-2014-16712

PATIENT
  Age: 46 Year
  Sex: Male

DRUGS (6)
  1. FLUOROURACIL (FLUOROURACIL) (FLUOROURACIL) [Suspect]
     Indication: COLON CANCER
     Route: 042
     Dates: start: 200806, end: 200812
  2. FLUOROURACIL (FLUOROURACIL) (FLUOROURACIL) [Suspect]
     Indication: METASTASES TO LIVER
     Route: 042
     Dates: start: 200806, end: 200812
  3. OXALIPLATIN (OXALIPLATIN) (OXALIPLATIN) [Suspect]
     Indication: COLON CANCER
     Route: 041
     Dates: start: 200806, end: 200812
  4. OXALIPLATIN (OXALIPLATIN) (OXALIPLATIN) [Suspect]
     Indication: METASTASES TO LIVER
     Route: 041
     Dates: start: 200806, end: 200812
  5. LEUCOVORIN (FOLINIC ACID) (FOLINIC ACID) [Suspect]
     Indication: COLON CANCER
     Route: 041
     Dates: start: 200806, end: 200812
  6. LEUCOVORIN (FOLINIC ACID) (FOLINIC ACID) [Suspect]
     Indication: METASTASES TO LIVER
     Route: 041
     Dates: start: 200806, end: 200812

REACTIONS (8)
  - Periportal sinus dilatation [None]
  - Portal hypertension [None]
  - Portal vein occlusion [None]
  - Thrombocytopenia [None]
  - Splenomegaly [None]
  - Varices oesophageal [None]
  - Gastric varices [None]
  - Liver disorder [None]
